FAERS Safety Report 5680002-8 (Version None)
Quarter: 2008Q1

REPORT INFORMATION
  Report Type: 
  Country: None (occurrence: None)
  Receive Date: 20080325
  Receipt Date: 20080325
  Transmission Date: 20080703
  Serious: Yes (Hospitalization)
  Sender: FDA-Public Use
  Company Number: None

PATIENT
  Sex: Female
  Weight: 14.2 kg

DRUGS (8)
  1. CYCLOPHOSPHAMIDE [Suspect]
     Dosage: 600 MG
  2. CYTARABINE [Suspect]
     Dosage: 360 MG
  3. DEXAMETHASONE TAB [Suspect]
     Dosage: 126 MG
  4. DOXORUBICIN HYDROCHLORIDE [Suspect]
     Dosage: 42 MG
  5. METHOTREXATE [Suspect]
     Dosage: 30 MG
  6. PEG-L- ASPARAGINASE (K-H) [Suspect]
     Dosage: 1425 UNIT
  7. THIOGUANINE [Suspect]
     Dosage: 520 MG
  8. VINCRISTINE SULFATE [Suspect]
     Dosage: 2.59 MG

REACTIONS (8)
  - ABDOMINAL DISTENSION [None]
  - ABDOMINAL PAIN [None]
  - ASCITES [None]
  - HEPATIC CONGESTION [None]
  - HEPATOMEGALY [None]
  - NEUTROPENIA [None]
  - PORTAL HYPERTENSION [None]
  - URINARY TRACT INFECTION ENTEROCOCCAL [None]
